FAERS Safety Report 14406387 (Version 1)
Quarter: 2018Q1

REPORT INFORMATION
  Report Type: Spontaneous
  Country: US (occurrence: US)
  Receive Date: 20180118
  Receipt Date: 20180118
  Transmission Date: 20180509
  Serious: No
  Sender: FDA-Public Use
  Company Number: None

PATIENT
  Age: 58 Year
  Sex: Female
  Weight: 98.43 kg

DRUGS (9)
  1. LISINOPRIL/HCTZ [Suspect]
     Active Substance: HYDROCHLOROTHIAZIDE\LISINOPRIL
  2. VITAMIN D [Concomitant]
     Active Substance: CHOLECALCIFEROL
  3. MULTI VITAMIN [Concomitant]
     Active Substance: VITAMINS
  4. VITAMIN [Concomitant]
     Active Substance: VITAMINS
  5. ENOXAPARIN SODIUM INJECTION 40MG/0.4ML [Suspect]
     Active Substance: ENOXAPARIN SODIUM
     Indication: ANTICOAGULANT THERAPY
     Dosage: DOSE - ONCE DAILY INJECTION
     Dates: start: 20171206, end: 20171222
  6. ATORVASTATIN [Concomitant]
     Active Substance: ATORVASTATIN
  7. IRON [Concomitant]
     Active Substance: IRON
  8. NAPROXEN. [Concomitant]
     Active Substance: NAPROXEN
  9. ZYRTEC [Concomitant]
     Active Substance: CETIRIZINE HYDROCHLORIDE

REACTIONS (2)
  - Pain in extremity [None]
  - Musculoskeletal disorder [None]

NARRATIVE: CASE EVENT DATE: 20171206
